FAERS Safety Report 6004768-2 (Version None)
Quarter: 2008Q4

REPORT INFORMATION
  Report Type: 
  Country: None (occurrence: None)
  Receive Date: 20081215
  Receipt Date: 20071025
  Transmission Date: 20090506
  Serious: No
  Sender: FDA-Public Use
  Company Number: APP200700320

PATIENT
  Age: 5 Year
  Sex: Female
  Weight: 25.1746 kg

DRUGS (1)
  1. PENTAM [Suspect]
     Indication: DRUG USE FOR UNKNOWN INDICATION
     Dosage: INTRAVENOUS
     Route: 042
     Dates: start: 20070301

REACTIONS (1)
  - ANAPHYLACTIC REACTION [None]
